FAERS Safety Report 12792553 (Version 1)
Quarter: 2016Q3

REPORT INFORMATION
  Report Type: Spontaneous
  Country: US (occurrence: US)
  Receive Date: 20160926
  Receipt Date: 20160926
  Transmission Date: 20161109
  Serious: Yes (Disabling)
  Sender: FDA-Public Use
  Company Number: None

PATIENT
  Age: 39 Year
  Sex: Female
  Weight: 56.25 kg

DRUGS (10)
  1. VITAMIN D [Concomitant]
     Active Substance: CHOLECALCIFEROL
  2. ZOFRAN ODT [Concomitant]
     Active Substance: ONDANSETRON HYDROCHLORIDE
  3. BELBUCA [Suspect]
     Active Substance: BUPRENORPHINE HYDROCHLORIDE
     Indication: ABDOMINAL PAIN
     Dosage: ?          OTHER STRENGTH:MCG;?
     Route: 060
     Dates: start: 20160413
  4. PROTONIX [Concomitant]
     Active Substance: PANTOPRAZOLE SODIUM
  5. TRAMADOL. [Concomitant]
     Active Substance: TRAMADOL
  6. DOMPERIDONE [Concomitant]
     Active Substance: DOMPERIDONE
  7. MULTIVITAMIN [Concomitant]
     Active Substance: VITAMINS
  8. GINGER ROOT [Concomitant]
     Active Substance: GINGER
  9. BELBUCA [Suspect]
     Active Substance: BUPRENORPHINE HYDROCHLORIDE
     Indication: IMPAIRED GASTRIC EMPTYING
     Dosage: ?          OTHER STRENGTH:MCG;?
     Route: 060
     Dates: start: 20160413
  10. VITAMIN B COMPLEX [Concomitant]
     Active Substance: CYANOCOBALAMIN\DEXPANTHENOL\NIACINAMIDE\PYRIDOXINE HYDROCHLORIDE\RIBOFLAVIN 5^-PHOSPHATE SODIUM\THIAMINE HYDROCHLORIDE\VITAMIN B COMPLEX

REACTIONS (2)
  - Opiates negative [None]
  - Therapy cessation [None]

NARRATIVE: CASE EVENT DATE: 20160713
